FAERS Safety Report 15301276 (Version 1)
Quarter: 2018Q3

REPORT INFORMATION
  Report Type: Spontaneous
  Country: CN (occurrence: CN)
  Receive Date: 20180821
  Receipt Date: 20180821
  Transmission Date: 20181010
  Serious: Yes (Other)
  Sender: FDA-Public Use
  Company Number: CN-SEBELA IRELAND LIMITED-2018SEB00211

PATIENT
  Age: 50 Year
  Sex: Female

DRUGS (1)
  1. AZATHIOPRINE. [Suspect]
     Active Substance: AZATHIOPRINE
     Indication: NEUROMYELITIS OPTICA SPECTRUM DISORDER
     Dosage: 100 MG, 1X/DAY
     Route: 048
     Dates: start: 201603

REACTIONS (2)
  - Depression [Recovered/Resolved]
  - Nicotinic acid deficiency [Recovered/Resolved]

NARRATIVE: CASE EVENT DATE: 201603
